FAERS Safety Report 7367423-2 (Version None)
Quarter: 2011Q1

REPORT INFORMATION
  Report Type: 
  Country: None (occurrence: None)
  Receive Date: 20110322
  Receipt Date: 20110316
  Transmission Date: 20110831
  Serious: Yes (Other)
  Sender: FDA-Public Use
  Company Number: US-CEPHALON-2011000681

PATIENT
  Sex: Female
  Weight: 59 kg

DRUGS (2)
  1. NUVIGIL [Suspect]
     Indication: CIRCADIAN RHYTHM SLEEP DISORDER
     Route: 048
     Dates: start: 20090901, end: 20110209
  2. YASMIN [Concomitant]
     Dates: start: 20010101

REACTIONS (1)
  - ANAPHYLACTIC REACTION [None]
